FAERS Safety Report 21526758 (Version 1)
Quarter: 2022Q4

REPORT INFORMATION
  Report Type: Other
  Country: DE (occurrence: DE)
  Receive Date: 20221031
  Receipt Date: 20221031
  Transmission Date: 20230113
  Serious: Yes (Hospitalization, Other)
  Sender: FDA-Public Use
  Company Number: DE-NOVPHSZ-PHHY2018DE065704

PATIENT
  Sex: Female

DRUGS (7)
  1. RITUXIMAB [Suspect]
     Active Substance: RITUXIMAB
     Indication: Rheumatoid arthritis
     Route: 065
     Dates: start: 201702
  2. RITUXIMAB [Suspect]
     Active Substance: RITUXIMAB
     Route: 065
     Dates: start: 201608
  3. RITUXIMAB [Suspect]
     Active Substance: RITUXIMAB
     Route: 065
     Dates: start: 201711
  4. RITUXIMAB [Suspect]
     Active Substance: RITUXIMAB
     Indication: Rheumatoid arthritis
     Dosage: 500 MG
     Route: 041
     Dates: start: 201711, end: 20171130
  5. METHOTREXATE [Suspect]
     Active Substance: METHOTREXATE
     Indication: Rheumatoid arthritis
     Dosage: 10 MG, QW?THERAPY DATES- 13/FEB/2019, 06/AUG/2019
     Route: 065
     Dates: start: 20180725
  6. METHOTREXATE [Suspect]
     Active Substance: METHOTREXATE
     Dosage: 20 MG?THERAPY DATES- 24/AUG/2020, 02/AUG/2016, 17/FEB/2020, 15/NOV/2016, 29/AUG/2017, 18/FEB/2017
     Route: 065
     Dates: start: 20180216
  7. METHOTREXATE [Suspect]
     Active Substance: METHOTREXATE
     Dosage: 15 MG
     Route: 065

REACTIONS (12)
  - Back pain [Not Recovered/Not Resolved]
  - Tricuspid valve incompetence [Unknown]
  - Eczema nummular [Unknown]
  - Device loosening [Unknown]
  - Lumbar spinal stenosis [Not Recovered/Not Resolved]
  - Hyperkeratosis [Unknown]
  - Rheumatoid arthritis [Recovered/Resolved]
  - Rash [Recovered/Resolved]
  - Skin discolouration [Not Recovered/Not Resolved]
  - Oral herpes [Recovered/Resolved]
  - Tinea pedis [Unknown]
  - Cubital tunnel syndrome [Not Recovered/Not Resolved]

NARRATIVE: CASE EVENT DATE: 20171101
